FAERS Safety Report 11421996 (Version 3)
Quarter: 2017Q1

REPORT INFORMATION
  Report Type: Report from Study
  Country: US (occurrence: US)
  Receive Date: 20150827
  Receipt Date: 20170308
  Transmission Date: 20170428
  Serious: Yes (Other)
  Sender: FDA-Public Use
  Company Number: PHEH2015US015592

PATIENT
  Sex: Female

DRUGS (1)
  1. GILENYA [Suspect]
     Active Substance: FINGOLIMOD HYDROCHLORIDE
     Indication: MULTIPLE SCLEROSIS
     Dosage: 0.5 MG, QD
     Route: 048
     Dates: start: 20150728

REACTIONS (7)
  - Sleep disorder [Unknown]
  - Blindness [Unknown]
  - Eye disorder [Unknown]
  - Libido increased [Unknown]
  - Dizziness [Unknown]
  - Increased appetite [Unknown]
  - Insomnia [Unknown]
